FAERS Safety Report 25249922 (Version 1)
Quarter: 2025Q2

REPORT INFORMATION
  Report Type: Spontaneous
  Country: US (occurrence: US)
  Receive Date: 20250429
  Receipt Date: 20250429
  Transmission Date: 20250717
  Serious: No
  Sender: INNOGENIX, LLC
  Company Number: US-Innogenix, LLC-2175804

PATIENT
  Sex: Female

DRUGS (2)
  1. LABETALOL HYDROCHLORIDE [Suspect]
     Active Substance: LABETALOL HYDROCHLORIDE
     Indication: Hypertension
  2. CARDENE [Concomitant]
     Active Substance: NICARDIPINE HYDROCHLORIDE

REACTIONS (6)
  - Tremor [Unknown]
  - Exposure during pregnancy [Unknown]
  - Vomiting [Unknown]
  - Nausea [Unknown]
  - Migraine [Unknown]
  - Hot flush [Unknown]
